FAERS Safety Report 4351739-8 (Version None)
Quarter: 2004Q2

REPORT INFORMATION
  Report Type: 
  Country: None (occurrence: None)
  Receive Date: 20040429
  Receipt Date: 20040220
  Transmission Date: 20050107
  Serious: No
  Sender: FDA-Public Use
  Company Number: 2004-113953-NL

PATIENT
  Age: 24 Year
  Sex: Female
  Weight: 63.5 kg

DRUGS (3)
  1. NUVARING [Suspect]
     Indication: CONTRACEPTION
     Dates: start: 20030101
  2. ANTIBIOTICS [Concomitant]
  3. ANTI-FUNGAL SUPPOSITORY [Concomitant]

REACTIONS (4)
  - DEVICE FAILURE [None]
  - FUNGAL INFECTION [None]
  - MEDICAL DEVICE DISCOMFORT [None]
  - SINUSITIS [None]
